FAERS Safety Report 8629354 (Version 3)
Quarter: 2012Q4

REPORT INFORMATION
  Report Type: 
  Country: US (occurrence: US)
  Receive Date: 20120622
  Receipt Date: 20121116
  Transmission Date: 20130627
  Serious: Yes (Hospitalization)
  Sender: FDA-Public Use
  Company Number: US-BIOGENIDEC-2012BI021847

PATIENT
  Age: 42 Year
  Sex: Female

DRUGS (1)
  1. TYSABRI [Suspect]
     Indication: CROHN^S DISEASE
     Route: 042
     Dates: start: 20100922, end: 20120126

REACTIONS (1)
  - Surgery [Recovered/Resolved]
